APPROVED DRUG PRODUCT: AVINZA
Active Ingredient: MORPHINE SULFATE
Strength: 120MG
Dosage Form/Route: CAPSULE, EXTENDED RELEASE;ORAL
Application: N021260 | Product #004
Applicant: KING PHARMACEUTICALS LLC
Approved: Mar 20, 2002 | RLD: No | RS: No | Type: DISCN